FAERS Safety Report 6349664-6 (Version None)
Quarter: 2009Q3

REPORT INFORMATION
  Report Type: 
  Country: None (occurrence: None)
  Receive Date: 20090911
  Receipt Date: 20090901
  Transmission Date: 20100115
  Serious: Yes (Hospitalization)
  Sender: FDA-Public Use
  Company Number: PHHY2009JP34537

PATIENT
  Age: 71 Year
  Sex: Female

DRUGS (1)
  1. DIOVAN [Suspect]
     Dosage: 28 TABLETS OF 80 MG AT ONCE
     Route: 048
     Dates: start: 20090812

REACTIONS (2)
  - OVERDOSE [None]
  - SUICIDE ATTEMPT [None]
